FAERS Safety Report 10456542 (Version 1)
Quarter: 2014Q3

REPORT INFORMATION
  Report Type: Spontaneous
  Country: US (occurrence: US)
  Receive Date: 20140916
  Receipt Date: 20140916
  Transmission Date: 20150326
  Serious: Yes (Other)
  Sender: FDA-Public Use
  Company Number: US-SA-2014SA125699

PATIENT
  Age: 74 Year
  Sex: Female

DRUGS (4)
  1. INSULIN [Concomitant]
     Active Substance: INSULIN NOS
     Dosage: DOSE: 70/30
  2. LEVOTHYROXINE [Concomitant]
     Active Substance: LEVOTHYROXINE
     Indication: THYROID DISORDER
  3. LANTUS [Suspect]
     Active Substance: INSULIN GLARGINE
     Indication: TYPE 2 DIABETES MELLITUS
     Dosage: DOSE: 52-58 UNITS
     Route: 065
     Dates: start: 20110919
  4. METFORMIN [Concomitant]
     Active Substance: METFORMIN HYDROCHLORIDE

REACTIONS (10)
  - White blood cell count increased [Unknown]
  - Cough [Unknown]
  - Fracture [Unknown]
  - Blood glucose increased [Unknown]
  - Weight increased [Unknown]
  - Lymphoma [Unknown]
  - Pollakiuria [Unknown]
  - Renal disorder [Unknown]
  - Productive cough [Unknown]
  - Wheelchair user [Unknown]

NARRATIVE: CASE EVENT DATE: 2011
